FAERS Safety Report 7533729-7 (Version None)
Quarter: 2011Q2

REPORT INFORMATION
  Report Type: 
  Country: None (occurrence: None)
  Receive Date: 20110608
  Receipt Date: 20060411
  Transmission Date: 20111010
  Serious: Yes (Hospitalization)
  Sender: FDA-Public Use
  Company Number: PHMT2006CA01068

PATIENT
  Sex: Male

DRUGS (1)
  1. CLOZAPINE [Suspect]
     Dosage: UNKNOWN
     Route: 048
     Dates: start: 20001110, end: 20060409

REACTIONS (2)
  - DELIRIUM [None]
  - INFECTION [None]
